FAERS Safety Report 20702096 (Version 1)
Quarter: 2022Q2

REPORT INFORMATION
  Report Type: Spontaneous
  Country: US (occurrence: US)
  Receive Date: 20220412
  Receipt Date: 20220412
  Transmission Date: 20220721
  Serious: No
  Sender: FDA-Public Use
  Company Number: US-PFIZER INC-2021797371

PATIENT
  Age: 62 Year
  Sex: Male
  Weight: 75.3 kg

DRUGS (1)
  1. LATANOPROST [Suspect]
     Active Substance: LATANOPROST
     Indication: Glaucoma
     Dosage: ONE DROP EACH EYE NIGHTLY
     Route: 047

REACTIONS (1)
  - Eye irritation [Unknown]
